FAERS Safety Report 6456952-1 (Version None)
Quarter: 2009Q4

REPORT INFORMATION
  Report Type: 
  Country: None (occurrence: None)
  Receive Date: 20091120
  Receipt Date: 20091029
  Transmission Date: 20100525
  Serious: Yes (Other)
  Sender: FDA-Public Use
  Company Number: AUR-APL-2009-01127

PATIENT
  Age: 87 Year
  Sex: Female

DRUGS (1)
  1. ATENOLOL [Suspect]

REACTIONS (2)
  - ECZEMA [None]
  - LYMPHOID TISSUE HYPERPLASIA [None]
